FAERS Safety Report 22593686 (Version 2)
Quarter: 2023Q2

REPORT INFORMATION
  Report Type: Report from Study
  Country: GB (occurrence: GB)
  Receive Date: 20230613
  Receipt Date: 20230616
  Transmission Date: 20230722
  Serious: Yes (Other)
  Sender: FDA-Public Use
  Company Number: GB-SAMSUNG BIOEPIS-SB-2023-12470

PATIENT
  Sex: Female

DRUGS (4)
  1. IMRALDI [Suspect]
     Active Substance: ADALIMUMAB
     Indication: Crohn^s disease
     Dosage: 40 MG/0.8ML;
     Route: 058
  2. IMRALDI [Suspect]
     Active Substance: ADALIMUMAB
     Dosage: INDUCTION DOSE (WEEK 0)
     Route: 058
     Dates: start: 20230208
  3. IMRALDI [Suspect]
     Active Substance: ADALIMUMAB
     Dosage: (WEEK 2)
     Route: 058
  4. IMRALDI [Suspect]
     Active Substance: ADALIMUMAB
     Dosage: (WEEK 4)
     Route: 058

REACTIONS (6)
  - Crohn^s disease [Not Recovered/Not Resolved]
  - Infection [Unknown]
  - Headache [Not Recovered/Not Resolved]
  - Eczema [Not Recovered/Not Resolved]
  - Pain [Not Recovered/Not Resolved]
  - Feeding disorder [Not Recovered/Not Resolved]
